FAERS Safety Report 16200402 (Version 1)
Quarter: 2019Q2

REPORT INFORMATION
  Report Type: Spontaneous
  Country: SE (occurrence: SE)
  Receive Date: 20190416
  Receipt Date: 20190416
  Transmission Date: 20190711
  Serious: Yes (Other)
  Sender: FDA-Public Use
  Company Number: SE-ALLERGAN-1916373US

PATIENT
  Sex: Male

DRUGS (1)
  1. GANFORT [Suspect]
     Active Substance: BIMATOPROST\TIMOLOL
     Indication: GLAUCOMA
     Dosage: UNK UNK, QD
     Route: 047
     Dates: start: 20160607, end: 20161205

REACTIONS (2)
  - Diplopia [Recovered/Resolved]
  - Exophthalmos [Recovered/Resolved]

NARRATIVE: CASE EVENT DATE: 20161205
